FAERS Safety Report 15265562 (Version 8)
Quarter: 2020Q4

REPORT INFORMATION
  Report Type: Report from Study
  Country: GT (occurrence: GT)
  Receive Date: 20180810
  Receipt Date: 20201224
  Transmission Date: 20210113
  Serious: Yes (Other)
  Sender: FDA-Public Use
  Company Number: PHHY2015GT074028

PATIENT
  Age: 41 Year
  Sex: Female
  Weight: 64.4 kg

DRUGS (10)
  1. GILENYA [Suspect]
     Active Substance: FINGOLIMOD HYDROCHLORIDE
     Dosage: 0.5 MG
     Route: 048
     Dates: start: 20150213
  2. DIPHENIDOL [Concomitant]
     Active Substance: DIPHENIDOL
     Indication: PRODUCT USED FOR UNKNOWN INDICATION
     Dosage: UNK, QD
     Route: 065
     Dates: start: 201611
  3. GILENYA [Suspect]
     Active Substance: FINGOLIMOD HYDROCHLORIDE
     Indication: MULTIPLE SCLEROSIS
     Dosage: 0.5 MG, QD
     Route: 048
     Dates: start: 20150203
  4. LYRICA [Concomitant]
     Active Substance: PREGABALIN
     Indication: PRODUCT USED FOR UNKNOWN INDICATION
     Dosage: 150 MG, QD
     Route: 065
  5. TIZANIDINE. [Concomitant]
     Active Substance: TIZANIDINE
     Indication: PRODUCT USED FOR UNKNOWN INDICATION
     Dosage: UNK, QD
     Route: 065
     Dates: start: 201503
  6. LANSOPRAZOLE. [Concomitant]
     Active Substance: LANSOPRAZOLE
     Indication: PRODUCT USED FOR UNKNOWN INDICATION
     Dosage: UNK, BID
     Route: 065
     Dates: start: 201503
  7. GILENYA [Suspect]
     Active Substance: FINGOLIMOD HYDROCHLORIDE
     Dosage: 1 DF, QD (ONE DAILY IN THE MORNING)
     Route: 065
     Dates: start: 201503
  8. GILENYA [Suspect]
     Active Substance: FINGOLIMOD HYDROCHLORIDE
     Dosage: 0.5 MG, QD
     Route: 048
     Dates: start: 20160203
  9. VITAMIN D [Concomitant]
     Active Substance: VITAMIN D NOS
     Indication: PRODUCT USED FOR UNKNOWN INDICATION
     Dosage: UNK UNK, QD
     Route: 065
     Dates: start: 201503
  10. RUPATADINE FUMARATE [Concomitant]
     Active Substance: RUPATADINE FUMARATE
     Indication: PRODUCT USED FOR UNKNOWN INDICATION
     Dosage: UNK, QD
     Route: 065
     Dates: start: 201611

REACTIONS (49)
  - Hemianaesthesia [Unknown]
  - Muscle spasms [Unknown]
  - Fear [Unknown]
  - Anxiety [Unknown]
  - Pain [Unknown]
  - Oral pain [Unknown]
  - Fatigue [Unknown]
  - Visual impairment [Unknown]
  - Gait disturbance [Unknown]
  - Insomnia [Unknown]
  - Balance disorder [Unknown]
  - Neck pain [Not Recovered/Not Resolved]
  - Chest discomfort [Unknown]
  - Pigmentation disorder [Unknown]
  - Varicella [Unknown]
  - Herpes zoster [Unknown]
  - Burning sensation [Unknown]
  - Hypoaesthesia oral [Unknown]
  - Vision blurred [Unknown]
  - Urinary incontinence [Unknown]
  - Eye pain [Unknown]
  - Stress [Unknown]
  - Back pain [Unknown]
  - Pruritus [Unknown]
  - Tremor [Unknown]
  - Malaise [Unknown]
  - Tinnitus [Unknown]
  - Limb injury [Unknown]
  - Arthralgia [Unknown]
  - Fall [Unknown]
  - Feeling hot [Unknown]
  - Haematoma [Unknown]
  - Speech disorder [Unknown]
  - Headache [Not Recovered/Not Resolved]
  - Dizziness [Unknown]
  - Blindness unilateral [Not Recovered/Not Resolved]
  - Glaucoma [Unknown]
  - Multiple sclerosis relapse [Unknown]
  - Pain in extremity [Unknown]
  - Muscular weakness [Not Recovered/Not Resolved]
  - Head injury [Unknown]
  - Contusion [Unknown]
  - Somnolence [Not Recovered/Not Resolved]
  - Arthritis [Unknown]
  - Mood altered [Unknown]
  - Hypersomnia [Unknown]
  - Hypoaesthesia [Unknown]
  - Retinal detachment [Unknown]
  - Nasopharyngitis [Unknown]

NARRATIVE: CASE EVENT DATE: 20160406
